FAERS Safety Report 10700592 (Version 5)
Quarter: 2015Q2

REPORT INFORMATION
  Report Type: Spontaneous
  Country: CH (occurrence: CH)
  Receive Date: 20150109
  Receipt Date: 20150526
  Transmission Date: 20150821
  Serious: Yes (Congenital Anomaly, Other)
  Sender: FDA-Public Use
  Company Number: CH-PFIZER INC-2015004043

PATIENT
  Sex: Female

DRUGS (4)
  1. CIPRALEX [Suspect]
     Active Substance: ESCITALOPRAM OXALATE
     Indication: PANIC DISORDER
     Dosage: 10 MG, 1X/DAY
     Route: 064
     Dates: start: 20130705
  2. XANAX [Suspect]
     Active Substance: ALPRAZOLAM
     Indication: PANIC DISORDER
     Dosage: 0.5 MG, DAILY
     Route: 064
  3. XANAX [Suspect]
     Active Substance: ALPRAZOLAM
     Dosage: 1.5 MG, DAILY
     Route: 064
  4. XANAX [Suspect]
     Active Substance: ALPRAZOLAM
     Dosage: 0.125 MG AT NOON AND 0.25 MG IN THE EVENING
     Route: 064

REACTIONS (5)
  - Maternal exposure during pregnancy [Unknown]
  - Premature baby [Unknown]
  - Psychomotor skills impaired [Unknown]
  - Atrial septal defect [Unknown]
  - Pulmonary valve stenosis [Unknown]

NARRATIVE: CASE EVENT DATE: 201308
